FAERS Safety Report 14204747 (Version 2)
Quarter: 2017Q4

REPORT INFORMATION
  Report Type: Spontaneous
  Country: US (occurrence: US)
  Receive Date: 20171120
  Receipt Date: 20171218
  Transmission Date: 20180321
  Serious: No
  Sender: FDA-Public Use
  Company Number: US-GLAXOSMITHKLINE-US2017GSK175546

PATIENT
  Age: 55 Year
  Sex: Male

DRUGS (4)
  1. ADVAIR DISKUS [Suspect]
     Active Substance: FLUTICASONE PROPIONATE\SALMETEROL XINAFOATE
     Indication: PULMONARY RESECTION
  2. ADVAIR DISKUS [Suspect]
     Active Substance: FLUTICASONE PROPIONATE\SALMETEROL XINAFOATE
     Indication: PNEUMONIA
     Dosage: UNK
     Dates: start: 2015
  3. ADVAIR DISKUS [Suspect]
     Active Substance: FLUTICASONE PROPIONATE\SALMETEROL XINAFOATE
     Indication: SYSTEMIC INFLAMMATORY RESPONSE SYNDROME
  4. ADVAIR DISKUS [Suspect]
     Active Substance: FLUTICASONE PROPIONATE\SALMETEROL XINAFOATE
     Indication: LUNG DISORDER

REACTIONS (7)
  - Off label use [Unknown]
  - Vision blurred [Unknown]
  - Limb injury [Not Recovered/Not Resolved]
  - Concussion [Unknown]
  - Migraine [Unknown]
  - Road traffic accident [Unknown]
  - Tinnitus [Unknown]

NARRATIVE: CASE EVENT DATE: 20170924
